FAERS Safety Report 18760732 (Version 1)
Quarter: 2021Q1

REPORT INFORMATION
  Report Type: Other
  Country: CN (occurrence: CN)
  Receive Date: 20210120
  Receipt Date: 20210120
  Transmission Date: 20210419
  Serious: Yes (Other)
  Sender: FDA-Public Use
  Company Number: CN-ROCHE-2747179

PATIENT
  Sex: Female

DRUGS (7)
  1. DOCETAXEL. [Suspect]
     Active Substance: DOCETAXEL
     Indication: HER2 POSITIVE BREAST CANCER
     Dosage: ON DAY 1 OF 21 DAY CYCLE
     Route: 041
  2. TRASTUZUMAB. [Suspect]
     Active Substance: TRASTUZUMAB
     Indication: HER2 POSITIVE BREAST CANCER
     Route: 041
  3. TRASTUZUMAB. [Suspect]
     Active Substance: TRASTUZUMAB
     Route: 041
  4. CARBOPLATIN. [Suspect]
     Active Substance: CARBOPLATIN
     Indication: HER2 POSITIVE BREAST CANCER
     Dosage: AUC 6, ON DAY 1 OF 21 DAY CYCLE
     Route: 041
  5. CYCLOPHOSPHAMIDE. [Suspect]
     Active Substance: CYCLOPHOSPHAMIDE
     Indication: HER2 POSITIVE BREAST CANCER
     Dosage: ON DAY 1 OF 21 DAY CYCLE
     Route: 041
  6. PACLITAXEL. [Suspect]
     Active Substance: PACLITAXEL
     Indication: HER2 POSITIVE BREAST CANCER
     Dosage: ON DAY 1 OF 21 DAY CYCLE
     Route: 041
  7. DOXORUBICIN [Suspect]
     Active Substance: DOXORUBICIN
     Indication: HER2 POSITIVE BREAST CANCER
     Dosage: ON DAY 1 OF 21 DAY CYCLE,
     Route: 041

REACTIONS (8)
  - Anaemia [Recovered/Resolved]
  - Infection [Recovered/Resolved]
  - Leukopenia [Unknown]
  - Neutrophil count decreased [Recovered/Resolved]
  - Hepatic enzyme increased [Unknown]
  - Pyrexia [Unknown]
  - White blood cell count decreased [Unknown]
  - Cardiotoxicity [Recovered/Resolved]
